FAERS Safety Report 4797235-5 (Version None)
Quarter: 2005Q4

REPORT INFORMATION
  Report Type: 
  Country: None (occurrence: None)
  Receive Date: 20051013
  Receipt Date: 20050809
  Transmission Date: 20060501
  Serious: Yes (Death, Hospitalization)
  Sender: FDA-Public Use
  Company Number: JP-BRISTOL-MYERS SQUIBB COMPANY-13072178

PATIENT
  Age: 66 Year
  Sex: Male

DRUGS (8)
  1. TAXOL [Suspect]
     Indication: THYMOMA
     Route: 042
     Dates: start: 20031010, end: 20031017
  2. TAXOL [Suspect]
     Route: 042
     Dates: start: 20031222, end: 20040421
  3. FERROMIA [Concomitant]
     Route: 048
  4. MAGNESIUM OXIDE [Concomitant]
     Route: 048
  5. SOLANAX [Concomitant]
     Route: 048
  6. LENDORMIN [Concomitant]
     Route: 048
  7. PRIMPERAN INJ [Concomitant]
     Route: 048
  8. ISODINE [Concomitant]
     Route: 048

REACTIONS (3)
  - APLASIA PURE RED CELL [None]
  - INTERSTITIAL LUNG DISEASE [None]
  - PULMONARY MYCOSIS [None]
